FAERS Safety Report 7689786-0 (Version None)
Quarter: 2011Q3

REPORT INFORMATION
  Report Type: 
  Country: None (occurrence: None)
  Receive Date: 20110817
  Receipt Date: 20110802
  Transmission Date: 20111222
  Serious: Yes (Other)
  Sender: FDA-Public Use
  Company Number: NL-JNJFOC-20110805161

PATIENT

DRUGS (2)
  1. VINCRISTINE [Interacting]
     Indication: ACUTE LYMPHOCYTIC LEUKAEMIA
     Route: 065
  2. ITRACONAZOLE [Suspect]
     Indication: PROPHYLAXIS
     Route: 065

REACTIONS (4)
  - CONSTIPATION [None]
  - NEUROPATHY PERIPHERAL [None]
  - DRUG INTERACTION [None]
  - NEUROTOXICITY [None]
